FAERS Safety Report 9969187 (Version 2)
Quarter: 2014Q1

REPORT INFORMATION
  Report Type: Report from Study
  Country: US (occurrence: US)
  Receive Date: 20140306
  Receipt Date: 20140311
  Transmission Date: 20141002
  Serious: Yes (Death, Other)
  Sender: FDA-Public Use
  Company Number: US-ROCHE-1330430

PATIENT
  Age: 86 Year
  Sex: Male

DRUGS (37)
  1. LUCENTIS [Suspect]
     Indication: AGE-RELATED MACULAR DEGENERATION
     Route: 050
     Dates: start: 20100128
  2. LUCENTIS [Suspect]
     Route: 050
     Dates: start: 20100303
  3. LUCENTIS [Suspect]
     Route: 050
     Dates: start: 20100405
  4. LUCENTIS [Suspect]
     Route: 050
     Dates: start: 20100520
  5. LUCENTIS [Suspect]
     Route: 050
     Dates: start: 20100708
  6. LUCENTIS [Suspect]
     Route: 050
     Dates: start: 20100826
  7. LUCENTIS [Suspect]
     Route: 050
     Dates: start: 20101021
  8. LUCENTIS [Suspect]
     Route: 050
     Dates: start: 20101216
  9. LUCENTIS [Suspect]
     Route: 050
     Dates: start: 20110217
  10. LUCENTIS [Suspect]
     Route: 050
     Dates: start: 20110428
  11. LUCENTIS [Suspect]
     Route: 050
     Dates: start: 20110630
  12. LUCENTIS [Suspect]
     Route: 050
     Dates: start: 20110908
  13. AVASTIN [Suspect]
     Indication: AGE-RELATED MACULAR DEGENERATION
     Route: 050
     Dates: start: 20090924
  14. AVASTIN [Suspect]
     Route: 050
     Dates: start: 20091022
  15. AVASTIN [Suspect]
     Route: 050
     Dates: start: 20091130
  16. AVASTIN [Suspect]
     Route: 050
     Dates: start: 20091231
  17. OMEPRAZOLE [Concomitant]
  18. SALSALATE [Concomitant]
  19. HYPROMELLOSE [Concomitant]
  20. METOPROLOL TARTRATE [Concomitant]
  21. PSYLLIUM SEED [Concomitant]
  22. SENNOSIDES [Concomitant]
  23. MENTHOL [Concomitant]
  24. PLAVIX [Concomitant]
  25. DOXEPIN [Concomitant]
  26. PRESERVISION AREDS [Concomitant]
  27. GUAIFENESIN [Concomitant]
  28. HUMALOG [Concomitant]
  29. DOCUSATE SODIUM [Concomitant]
  30. IPRATROPIUM BROMIDE [Concomitant]
  31. SODIUM FLUORIDE [Concomitant]
  32. METHOCARBAMOL [Concomitant]
  33. FUROSEMIDE [Concomitant]
  34. METFORMIN HCL [Concomitant]
  35. LISINOPRIL [Concomitant]
  36. VIGAMOX [Concomitant]
  37. LIDOCAINE [Concomitant]
     Indication: AGE-RELATED MACULAR DEGENERATION

REACTIONS (26)
  - Death [Fatal]
  - Cerebrovascular accident [Unknown]
  - Visual acuity reduced [Unknown]
  - Retinal scar [Unknown]
  - Retinal haemorrhage [Unknown]
  - Vision blurred [Unknown]
  - Eye pain [Unknown]
  - Maculopathy [Unknown]
  - Dyspnoea [Unknown]
  - Cough [Unknown]
  - Deafness [Unknown]
  - Sinus disorder [Unknown]
  - Vertigo [Unknown]
  - Heart rate irregular [Unknown]
  - Temperature intolerance [Unknown]
  - Polydipsia [Unknown]
  - Mood altered [Unknown]
  - Headache [Unknown]
  - Back pain [Unknown]
  - Joint swelling [Unknown]
  - Muscular weakness [Unknown]
  - Hypoaesthesia [Unknown]
  - Fatigue [Unknown]
  - Irritability [Unknown]
  - Contusion [Unknown]
  - Retinal neovascularisation [Unknown]
